FAERS Safety Report 4430513-8 (Version None)
Quarter: 2004Q3

REPORT INFORMATION
  Report Type: 
  Country: None (occurrence: None)
  Receive Date: 20040721
  Receipt Date: 20030826
  Transmission Date: 20050211
  Serious: Yes (Death)
  Sender: FDA-Public Use
  Company Number: OMPQ-PR-0308L-0581(0)

PATIENT
  Age: 45 Year
  Sex: Male

DRUGS (6)
  1. OMNIPAQUE 140 [Suspect]
     Indication: CORONARY ARTERY DISEASE
     Dosage: SINGLE DOSE, I.T.
  2. OMNIPAQUE 140 [Suspect]
     Indication: CORONARY ARTERY OCCLUSION
     Dosage: SINGLE DOSE, I.T.
  3. OMNIPAQUE 140 [Suspect]
     Indication: CORONARY ARTERY STENOSIS
     Dosage: SINGLE DOSE, I.T.
  4. ASPIRIN [Concomitant]
  5. DIPYRIDAMOLE [Concomitant]
  6. HEPARIN [Concomitant]

REACTIONS (1)
  - CORONARY ARTERY THROMBOSIS [None]
